FAERS Safety Report 9397312 (Version 1)
Quarter: 2013Q3

REPORT INFORMATION
  Report Type: Spontaneous
  Country: US (occurrence: US)
  Receive Date: 20130712
  Receipt Date: 20130712
  Transmission Date: 20140515
  Serious: Yes (Hospitalization)
  Sender: FDA-Public Use
  Company Number: US-ROCHE-1248003

PATIENT
  Sex: Male

DRUGS (4)
  1. PEGASYS [Suspect]
     Indication: CHRONIC HEPATITIS C
     Route: 065
     Dates: start: 20130501
  2. RIBAVIRIN [Interacting]
     Indication: CHRONIC HEPATITIS C
     Route: 065
     Dates: start: 20130501
  3. TELAPREVIR [Interacting]
     Indication: CHRONIC HEPATITIS C
     Route: 065
     Dates: start: 20130501
  4. FENTANYL PATCH [Interacting]
     Indication: PRODUCT USED FOR UNKNOWN INDICATION
     Route: 065

REACTIONS (1)
  - Drug interaction [Unknown]
